FAERS Safety Report 9596477 (Version 2)
Quarter: 2013Q4

REPORT INFORMATION
  Report Type: Report from Study
  Country: CA (occurrence: CA)
  Receive Date: 20131004
  Receipt Date: 20131008
  Transmission Date: 20140711
  Serious: Yes (Other)
  Sender: FDA-Public Use
  Company Number: CA-ABBVIE-13P-028-1153000-00

PATIENT
  Age: 49 Year
  Sex: Female

DRUGS (4)
  1. HUMIRA [Suspect]
     Indication: PSORIASIS
     Route: 058
     Dates: start: 20130207, end: 20130910
  2. WELLBUTRIN [Suspect]
     Indication: PRODUCT USED FOR UNKNOWN INDICATION
     Route: 048
  3. UNKNOWN CONCOMITANT DRUG [Suspect]
     Indication: ARTHRITIS
  4. UNKNOWN CONCOMITANT DRUG [Suspect]
     Indication: FIBROMYALGIA

REACTIONS (4)
  - Dental caries [Recovering/Resolving]
  - Tooth extraction [Unknown]
  - Psoriasis [Unknown]
  - Unevaluable event [Unknown]
